FAERS Safety Report 15597889 (Version 2)
Quarter: 2018Q4

REPORT INFORMATION
  Report Type: Report from Study
  Country: US (occurrence: US)
  Receive Date: 20181108
  Receipt Date: 20181114
  Transmission Date: 20190205
  Serious: Yes (Hospitalization, Other)
  Sender: FDA-Public Use
  Company Number: US-TEVA-2018-US-971331

PATIENT
  Age: 56 Year
  Sex: Male

DRUGS (8)
  1. BACLOFEN. [Concomitant]
     Active Substance: BACLOFEN
  2. LITHIUM. [Concomitant]
     Active Substance: LITHIUM
  3. AUSTEDO [Suspect]
     Active Substance: DEUTETRABENAZINE
     Indication: TARDIVE DYSKINESIA
     Dosage: 24 MILLIGRAM DAILY;
     Route: 065
     Dates: start: 20171213, end: 20181101
  4. COGENTIN [Concomitant]
     Active Substance: BENZTROPINE MESYLATE
  5. CLOZAPINE. [Concomitant]
     Active Substance: CLOZAPINE
  6. VITAMIN E [Concomitant]
     Active Substance: .ALPHA.-TOCOPHEROL
  7. LISINOPRIL. [Concomitant]
     Active Substance: LISINOPRIL
  8. CLONAZEPAM. [Concomitant]
     Active Substance: CLONAZEPAM

REACTIONS (6)
  - Adverse event [Recovering/Resolving]
  - Hyperhidrosis [Recovering/Resolving]
  - Restlessness [Recovering/Resolving]
  - Tongue movement disturbance [Recovered/Resolved]
  - Gait disturbance [Recovering/Resolving]
  - Intentional self-injury [Recovering/Resolving]

NARRATIVE: CASE EVENT DATE: 2018
